FAERS Safety Report 7047175-6 (Version None)
Quarter: 2010Q4

REPORT INFORMATION
  Report Type: 
  Country: None (occurrence: None)
  Receive Date: 20101015
  Receipt Date: 20101006
  Transmission Date: 20110411
  Serious: Yes (Other)
  Sender: FDA-Public Use
  Company Number: DZ-NOVOPROD-316212

PATIENT
  Age: 78 Year
  Sex: Female
  Weight: 57 kg

DRUGS (6)
  1. LEVEMIR [Suspect]
     Indication: TYPE 2 DIABETES MELLITUS
     Dosage: 20 IU, QD
  2. GLIMEPIRID [Concomitant]
  3. LOXEN [Concomitant]
  4. TENORMIN [Concomitant]
  5. ASPEGIC 325 [Concomitant]
  6. LOMAC [Concomitant]

REACTIONS (3)
  - ABDOMINAL PAIN UPPER [None]
  - MALAISE [None]
  - VOMITING [None]
